FAERS Safety Report 13313937 (Version 2)
Quarter: 2017Q1

REPORT INFORMATION
  Report Type: Spontaneous
  Country: JP (occurrence: JP)
  Receive Date: 20170309
  Receipt Date: 20170322
  Transmission Date: 20170428
  Serious: Yes (Other)
  Sender: FDA-Public Use
  Company Number: JP-009507513-1703JPN000007J

PATIENT
  Age: 88 Year
  Sex: Female

DRUGS (2)
  1. ERELSA TABLETS 50MG [Suspect]
     Active Substance: ELBASVIR
     Dosage: 50 MG, QD
     Route: 048
     Dates: start: 20161214, end: 20170201
  2. GRAZYNA TABLETS 50MG [Suspect]
     Active Substance: GRAZOPREVIR
     Dosage: 100 MG, QD
     Route: 048
     Dates: start: 20161214, end: 20170201

REACTIONS (3)
  - Spinal column stenosis [Recovering/Resolving]
  - Blood potassium increased [Recovered/Resolved]
  - Renal impairment [Recovered/Resolved]

NARRATIVE: CASE EVENT DATE: 20170201
